FAERS Safety Report 9077463 (Version 1)
Quarter: 2013Q1

REPORT INFORMATION
  Report Type: Report from Study
  Country: US (occurrence: US)
  Receive Date: 20130129
  Receipt Date: 20130129
  Transmission Date: 20140127
  Serious: No
  Sender: FDA-Public Use
  Company Number: US-ABBOTT-12P-163-0938784-00

PATIENT
  Age: 12 None
  Sex: Female

DRUGS (4)
  1. HUMIRA 40 MG/0.8 ML PEN [Suspect]
     Indication: CROHN^S DISEASE
     Dates: start: 201205
  2. HUMIRA 40 MG/0.8 ML PEN [Suspect]
  3. IMURAN [Concomitant]
     Indication: CROHN^S DISEASE
     Route: 048
  4. ASACOL [Concomitant]
     Indication: CROHN^S DISEASE
     Route: 048

REACTIONS (1)
  - Rash [Not Recovered/Not Resolved]
